FAERS Safety Report 6079298-2 (Version None)
Quarter: 2009Q1

REPORT INFORMATION
  Report Type: 
  Country: None (occurrence: None)
  Receive Date: 20090216
  Receipt Date: 20090130
  Transmission Date: 20090719
  Serious: Yes (Life-Threatening)
  Sender: FDA-Public Use
  Company Number: JP-PFIZER INC-2009166224

PATIENT

DRUGS (6)
  1. TOPOTECIN [Suspect]
     Indication: COLON CANCER
     Dosage: 240 MG/BODY INTERMITTENT (7/30,8/20)2 COURSE (240 MG)
     Route: 042
     Dates: start: 20080730, end: 20080820
  2. TOPOTECIN [Suspect]
     Indication: RECTAL CANCER
  3. FLUOROURACIL [Concomitant]
     Indication: COLON CANCER
     Dosage: 400 MG/M2 INTERMITTENT (7/30,8/21) 2 COURSE DAY1 (400MG/M2,1 IN2 WK)
     Route: 040
     Dates: start: 20080730, end: 20080821
  4. FLUOROURACIL [Concomitant]
     Indication: RECTAL CANCER
     Dosage: 2400 MG/M2 INTERMITTENT (7/30,8/23) 2 COURSE DAY1/2 (2400MG/M2,1 IN 2 WK)
     Route: 041
     Dates: start: 20080730, end: 20080823
  5. CALCIUM FOLINATE [Concomitant]
     Indication: COLON CANCER
     Dosage: 200 MG/M2 INTERMITTENT (7/30,8/21) 2 COURSE DAY1 (200 MG/M2, 1 IN 2 WK)
     Route: 042
     Dates: start: 20080730, end: 20080821
  6. CALCIUM FOLINATE [Concomitant]
     Indication: RECTAL CANCER

REACTIONS (3)
  - ACUTE RESPIRATORY DISTRESS SYNDROME [None]
  - INTERSTITIAL LUNG DISEASE [None]
  - LEUKOPENIA [None]
